FAERS Safety Report 8007947-8 (Version None)
Quarter: 2011Q4

REPORT INFORMATION
  Report Type: 
  Country: None (occurrence: None)
  Receive Date: 20111222
  Receipt Date: 20111222
  Transmission Date: 20120403
  Serious: Yes (Other)
  Sender: FDA-Public Use
  Company Number: None

PATIENT
  Age: 77 Year
  Sex: Female

DRUGS (1)
  1. ATELVIA [Suspect]
     Indication: BONE DISORDER
     Dosage: 35 MG 1 PER WEEK
     Dates: start: 20110811

REACTIONS (2)
  - ABDOMINAL DISTENSION [None]
  - GASTRIC DISORDER [None]
